FAERS Safety Report 6193905-5 (Version None)
Quarter: 2009Q2

REPORT INFORMATION
  Report Type: 
  Country: None (occurrence: None)
  Receive Date: 20090514
  Receipt Date: 20090501
  Transmission Date: 20091009
  Serious: Yes (Hospitalization)
  Sender: FDA-Public Use
  Company Number: 2009AL002920

PATIENT
  Age: 73 Year
  Sex: Female

DRUGS (11)
  1. FLUOXETINE [Suspect]
     Indication: DEPRESSION
     Dosage: 20 MG; PO
     Route: 048
     Dates: end: 20090101
  2. TAMOXIFEN CITRATE [Concomitant]
  3. AMLODIPINE [Concomitant]
  4. FOLIC ACID [Concomitant]
  5. THIAMINE HCL [Concomitant]
  6. VITAMIN B COMPLEX CAP [Concomitant]
  7. SIMVASTATIN [Concomitant]
  8. LANSOPRAZOLE [Concomitant]
  9. ACETYLSALICYLIC ACID [Concomitant]
  10. ACETAMINOPHEN W/ CODEINE [Concomitant]
  11. HYDROXOCOBALAMIN [Concomitant]

REACTIONS (2)
  - ALVEOLITIS [None]
  - INTERSTITIAL LUNG DISEASE [None]
